FAERS Safety Report 6092702-9 (Version None)
Quarter: 2009Q1

REPORT INFORMATION
  Report Type: 
  Country: None (occurrence: None)
  Receive Date: 20090219
  Receipt Date: 20081204
  Transmission Date: 20090719
  Serious: No
  Sender: FDA-Public Use
  Company Number: WAES 0812USA01610

PATIENT
  Age: 54 Year
  Sex: Male

DRUGS (3)
  1. JANUVIA [Suspect]
     Indication: DIABETES MELLITUS
     Dosage: 100 MG/DAILY/PO
     Route: 048
     Dates: start: 20081014, end: 20081204
  2. WELLBUTRIN SR [Concomitant]
  3. METFORMIN HCL [Concomitant]

REACTIONS (6)
  - ABDOMINAL PAIN [None]
  - ANOREXIA [None]
  - DYSPEPSIA [None]
  - HEADACHE [None]
  - URTICARIA [None]
  - VOMITING [None]
